FAERS Safety Report 17627810 (Version 3)
Quarter: 2020Q3

REPORT INFORMATION
  Report Type: Report from Study
  Country: None (occurrence: US)
  Receive Date: 20200405
  Receipt Date: 20200707
  Transmission Date: 20201102
  Serious: Yes (Other)
  Sender: FDA-Public Use
  Company Number: US-ABBVIE-20K-163-3348734-00

PATIENT
  Age: 68 Year
  Sex: Male

DRUGS (3)
  1. SULFASALAZINE. [Concomitant]
     Active Substance: SULFASALAZINE
     Indication: PRODUCT USED FOR UNKNOWN INDICATION
  2. SULFASALAZINE. [Concomitant]
     Active Substance: SULFASALAZINE
     Dosage: DOSE REDUCED
  3. HUMIRA [Suspect]
     Active Substance: ADALIMUMAB
     Indication: PSORIATIC ARTHROPATHY
     Route: 058
     Dates: start: 20200109

REACTIONS (9)
  - Extremity contracture [Unknown]
  - Rash [Unknown]
  - Mobility decreased [Unknown]
  - Anxiety [Recovered/Resolved]
  - Pain in extremity [Recovered/Resolved]
  - Psoriatic arthropathy [Unknown]
  - Loss of personal independence in daily activities [Recovered/Resolved]
  - Sciatica [Recovering/Resolving]
  - Depression [Recovered/Resolved]

NARRATIVE: CASE EVENT DATE: 2020
